FAERS Safety Report 8444351-2 (Version None)
Quarter: 2012Q2

REPORT INFORMATION
  Report Type: 
  Country: None (occurrence: None)
  Receive Date: 20120611
  Receipt Date: 20120511
  Transmission Date: 20120825
  Serious: Yes (Other)
  Sender: FDA-Public Use
  Company Number: 001235985A

PATIENT
  Age: 66 Year
  Sex: Female

DRUGS (4)
  1. PROACTIV 30 DAY KIT [Suspect]
     Indication: ACNE
     Dosage: ONCE DERMAL
     Dates: start: 20120401
  2. ALLEGRA [Concomitant]
  3. INSULIN [Concomitant]
  4. SINGULAIR [Concomitant]

REACTIONS (1)
  - URTICARIA [None]
